FAERS Safety Report 4559399-8 (Version None)
Quarter: 2005Q1

REPORT INFORMATION
  Report Type: 
  Country: None (occurrence: None)
  Receive Date: 20050119
  Receipt Date: 20050107
  Transmission Date: 20050727
  Serious: Yes (Hospitalization)
  Sender: FDA-Public Use
  Company Number: 041-0981-M0000028

PATIENT
  Age: 72 Year
  Sex: Male
  Weight: 88 kg

DRUGS (14)
  1. ATORVASTATIN (ATORVASTATIN) [Suspect]
     Indication: CORONARY ARTERY DISEASE
     Dosage: 10 + 80 MG (1 IN 1 D), ORAL SEE IMAGE
     Route: 048
     Dates: start: 19981223, end: 19990215
  2. ATORVASTATIN (ATORVASTATIN) [Suspect]
     Indication: CORONARY ARTERY DISEASE
     Dosage: 10 + 80 MG (1 IN 1 D), ORAL SEE IMAGE
     Route: 048
     Dates: start: 19990216, end: 20000511
  3. ALL OTHER THERAPEUTIC PRODUCTS (ALL OTHER THERAPEUTIC PRODUCTS) [Concomitant]
  4. NADROPARIN CALCIUM (NADROPARIN CALCIUM) [Concomitant]
  5. FELODIPINE [Concomitant]
  6. ASPIRIN [Concomitant]
  7. INSULIN [Concomitant]
  8. METFORMIN HCL [Concomitant]
  9. CIPROFLOXAXIN (CIPROFLOXACIN) [Concomitant]
  10. PANTOPRAZOLE (PANTOPRAZOLE) [Concomitant]
  11. QUINAPRIL HCL [Concomitant]
  12. NITROGLYCERIN [Concomitant]
  13. ATENOLOL [Concomitant]
  14. MAGNESIUM ASPARTATE (MAGNESIUM ASPARTATE) [Concomitant]

REACTIONS (11)
  - ANASTOMOTIC HAEMORRHAGE [None]
  - AORTIC ANEURYSM [None]
  - BLOOD CREATININE INCREASED [None]
  - DIALYSIS [None]
  - FAILURE TO ANASTOMOSE [None]
  - HYPERTENSION [None]
  - MYOCARDIAL INFARCTION [None]
  - PNEUMONIA [None]
  - POST PROCEDURAL COMPLICATION [None]
  - POST PROCEDURAL HAEMORRHAGE [None]
  - SURGICAL PROCEDURE REPEATED [None]
